FAERS Safety Report 7645385-8 (Version None)
Quarter: 2011Q3

REPORT INFORMATION
  Report Type: 
  Country: None (occurrence: None)
  Receive Date: 20110729
  Receipt Date: 20110722
  Transmission Date: 20111222
  Serious: Yes (Congenital Anomaly)
  Sender: FDA-Public Use
  Company Number: US-ABBOTT-11P-163-0838584-00

PATIENT
  Age: 55 Year
  Sex: Female

DRUGS (16)
  1. DURAGESIC-100 [Concomitant]
     Indication: PRODUCT USED FOR UNKNOWN INDICATION
     Dosage: PATCH, 1 IN 3 DAYS
  2. PHENERGAN HCL [Concomitant]
     Indication: NAUSEA
  3. METFORMIN HCL [Concomitant]
     Indication: DIABETES MELLITUS
     Route: 048
  4. MORPHINE SULFATE [Concomitant]
     Indication: PAIN
  5. ZOCOR [Concomitant]
     Indication: BLOOD CHOLESTEROL INCREASED
  6. ZANTAC [Concomitant]
     Indication: PRODUCT USED FOR UNKNOWN INDICATION
  7. HUMIRA [Suspect]
     Indication: PSORIATIC ARTHROPATHY
     Route: 058
     Dates: start: 20060101
  8. FLONASE [Concomitant]
     Indication: PRODUCT USED FOR UNKNOWN INDICATION
     Dosage: 2 PUFFS EACH NOSTRIL DAILY
  9. DEXALAN [Concomitant]
     Indication: PRODUCT USED FOR UNKNOWN INDICATION
  10. PRIMPRO [Concomitant]
     Indication: PRODUCT USED FOR UNKNOWN INDICATION
  11. XANAX [Concomitant]
     Indication: INSOMNIA
  12. ZOFRAN [Concomitant]
     Indication: NAUSEA
  13. XANAX [Concomitant]
     Indication: ANXIETY
     Dosage: AS REQUIRED, 2 IN 1 DAYS
  14. MUSCLE RELAXERS [Concomitant]
     Indication: PRODUCT USED FOR UNKNOWN INDICATION
  15. METHIMAZOLE [Concomitant]
     Indication: PRODUCT USED FOR UNKNOWN INDICATION
     Dosage: DAILY
     Dates: start: 20110701
  16. VALIUM [Concomitant]
     Indication: PRODUCT USED FOR UNKNOWN INDICATION

REACTIONS (22)
  - INSOMNIA [None]
  - HEART RATE INCREASED [None]
  - PALPITATIONS [None]
  - MUSCLE SPASMS [None]
  - PAIN IN EXTREMITY [None]
  - PRURITUS [None]
  - OESOPHAGITIS [None]
  - TREMOR [None]
  - NAUSEA [None]
  - HYPERHIDROSIS [None]
  - ROAD TRAFFIC ACCIDENT [None]
  - HYPERTHYROIDISM [None]
  - GASTROOESOPHAGEAL REFLUX DISEASE [None]
  - PORPHYRIA [None]
  - POST-TRAUMATIC NECK SYNDROME [None]
  - HYPERTENSION [None]
  - BLOOD CHOLESTEROL INCREASED [None]
  - GASTRITIS [None]
  - GOITRE [None]
  - ABDOMINAL PAIN [None]
  - BACK PAIN [None]
  - DIABETES MELLITUS [None]
